FAERS Safety Report 6079720-1 (Version None)
Quarter: 2009Q1

REPORT INFORMATION
  Report Type: 
  Country: None (occurrence: None)
  Receive Date: 20090211
  Receipt Date: 20090202
  Transmission Date: 20090719
  Serious: Yes (Death)
  Sender: FDA-Public Use
  Company Number: GXKR2009GB01358

PATIENT

DRUGS (2)
  1. DIGOXIN [Suspect]
  2. VENLAFAXINE (NGX) (VENLAFAXINE) [Suspect]

REACTIONS (2)
  - ARRHYTHMIA [None]
  - SYNCOPE [None]
